FAERS Safety Report 5683864-3 (Version None)
Quarter: 2008Q1

REPORT INFORMATION
  Report Type: 
  Country: None (occurrence: None)
  Receive Date: 20080326
  Receipt Date: 20080113
  Transmission Date: 20080703
  Serious: Yes (Hospitalization)
  Sender: FDA-Public Use
  Company Number: 001#1#2008-00026

PATIENT
  Sex: Female

DRUGS (2)
  1. NEUPRO [Suspect]
     Dosage: TRANSDERMAL
     Route: 062
  2. DEXAMETHASONE [Suspect]

REACTIONS (3)
  - DRUG INTERACTION [None]
  - MUSCLE SPASMS [None]
  - THROMBOPHLEBITIS SUPERFICIAL [None]
